FAERS Safety Report 8674688 (Version 2)
Quarter: 2013Q2

REPORT INFORMATION
  Report Type: Spontaneous
  Country: GB (occurrence: GB)
  Receive Date: 20120720
  Receipt Date: 20130617
  Transmission Date: 20140414
  Serious: Yes (Other)
  Sender: FDA-Public Use
  Company Number: GB-JNJFOC-20120707981

PATIENT
  Sex: 0

DRUGS (4)
  1. ITRACONAZOLE [Suspect]
     Indication: ASPERGILLUS INFECTION
     Route: 048
  2. ITRACONAZOLE [Suspect]
     Indication: BRONCHOPULMONARY ASPERGILLOSIS ALLERGIC
     Route: 048
  3. FLUTICASONE [Interacting]
     Indication: CYSTIC FIBROSIS
     Dosage: 500 MCG/1000 MCG
     Route: 055
  4. CORTICOSTEROID UNSPECIFIED [Interacting]
     Indication: CYSTIC FIBROSIS
     Dosage: MEDIAN DOSE OF 500 MCG/DAY
     Route: 055

REACTIONS (2)
  - Hypothalamic pituitary adrenal axis suppression [Unknown]
  - Drug interaction [Unknown]
